FAERS Safety Report 24640851 (Version 1)
Quarter: 2024Q4

REPORT INFORMATION
  Report Type: Spontaneous
  Country: FR (occurrence: FR)
  Receive Date: 20241120
  Receipt Date: 20241120
  Transmission Date: 20250115
  Serious: Yes (Hospitalization, Other)
  Sender: AUROBINDO
  Company Number: FR-JNJFOC-20241081368

PATIENT
  Age: 67 Year
  Sex: Male
  Weight: 88 kg

DRUGS (5)
  1. FOLIC ACID [Suspect]
     Active Substance: FOLIC ACID
     Indication: Hypovitaminosis
     Dosage: 5 MILLIGRAM IN 24 HOURS
     Route: 048
     Dates: start: 202402
  2. LOPERAMIDE [Suspect]
     Active Substance: LOPERAMIDE
     Indication: Diarrhoea
     Dosage: UNK
     Route: 048
     Dates: start: 20240417
  3. ACETAMINOPHEN [Suspect]
     Active Substance: ACETAMINOPHEN
     Indication: Pain
     Dosage: UNK
     Route: 048
     Dates: start: 20240415, end: 20240421
  4. CETYLPYRIDINIUM CHLORIDE\LYSOZYME HYDROCHLORIDE [Suspect]
     Active Substance: CETYLPYRIDINIUM CHLORIDE\LYSOZYME HYDROCHLORIDE
     Indication: Product used for unknown indication
     Dosage: UNK
     Route: 065
     Dates: start: 20240415, end: 20240421
  5. SODIUM PERCHLORATE [Suspect]
     Active Substance: SODIUM PERCHLORATE
     Indication: Hyperparathyroidism primary
     Dosage: 15 GTT DROPS, ONCE A DAY (15 GTT DROPS, ONCE A DAY (10DROPS MORNING, NOON AND EVENING UNTIL MAY 16 T
     Route: 048
     Dates: start: 20240319, end: 20240513

REACTIONS (1)
  - Toxic epidermal necrolysis [Recovered/Resolved]

NARRATIVE: CASE EVENT DATE: 20240427
